FAERS Safety Report 9266488 (Version 2)
Quarter: 2013Q2

REPORT INFORMATION
  Report Type: Spontaneous
  Country: GB (occurrence: GB)
  Receive Date: 20130502
  Receipt Date: 20130626
  Transmission Date: 20140414
  Serious: Yes (Hospitalization, Other)
  Sender: FDA-Public Use
  Company Number: GB-ROCHE-1220429

PATIENT
  Age: 78 Year
  Sex: Female

DRUGS (6)
  1. MABTHERA [Suspect]
     Indication: RHEUMATOID ARTHRITIS
     Route: 042
     Dates: start: 20130228, end: 20130228
  2. METHOTREXATE [Concomitant]
     Route: 048
  3. BISOPROLOL [Concomitant]
  4. NICORANDIL [Concomitant]
  5. ATORVASTATIN [Concomitant]
  6. TOLTERODINE [Concomitant]

REACTIONS (1)
  - Myocardial infarction [Recovered/Resolved]
